FAERS Safety Report 17567211 (Version 1)
Quarter: 2020Q1

REPORT INFORMATION
  Report Type: Spontaneous
  Country: ES (occurrence: ES)
  Receive Date: 20200320
  Receipt Date: 20200320
  Transmission Date: 20200409
  Serious: Yes (Life-Threatening)
  Sender: FDA-Public Use
  Company Number: ES-SA-2020SA069761

PATIENT
  Age: 77 Year
  Sex: Female

DRUGS (10)
  1. TOUJEO [Suspect]
     Active Substance: INSULIN GLARGINE
     Indication: TYPE 2 DIABETES MELLITUS
     Dosage: 74 IU, QD
     Route: 058
     Dates: start: 20170811
  2. CINITAPRIDA [CINITAPRIDE] [Concomitant]
     Indication: DYSPEPSIA
     Dosage: 5 MG, QD
     Route: 048
     Dates: start: 20190522
  3. LISINOPRIL. [Concomitant]
     Active Substance: LISINOPRIL
     Indication: ESSENTIAL HYPERTENSION
     Dosage: 10 MG, QD
     Route: 048
     Dates: start: 20180317
  4. TOUJEO [Suspect]
     Active Substance: INSULIN GLARGINE
     Dosage: UNKNOWN REDUCED DOSE
     Route: 058
  5. TORASEMIDA [Concomitant]
     Active Substance: TORSEMIDE
     Indication: ESSENTIAL HYPERTENSION
     Dosage: 2.5 MG, QD
     Route: 048
     Dates: start: 20190910
  6. LANSOPRAZOL [Concomitant]
     Active Substance: LANSOPRAZOLE
     Indication: DYSPEPSIA
     Dosage: 15 MG, QD
     Route: 048
     Dates: start: 20180317
  7. LORAZEPAM. [Concomitant]
     Active Substance: LORAZEPAM
     Indication: ANXIETY
     Dosage: 1 MG, QD
     Route: 048
     Dates: start: 20191211
  8. METFORMIN [Concomitant]
     Active Substance: METFORMIN HYDROCHLORIDE
     Indication: TYPE 2 DIABETES MELLITUS
     Dosage: 500 MG, BID
     Route: 048
     Dates: start: 20191210
  9. DIAZEPAM. [Concomitant]
     Active Substance: DIAZEPAM
     Indication: GENERAL SYMPTOM
     Dosage: 5 MG, QD
     Route: 048
     Dates: start: 20190808
  10. PARACETAMOL [Concomitant]
     Active Substance: ACETAMINOPHEN
     Indication: GENERAL SYMPTOM
     Dosage: 650 MG, BID
     Route: 048
     Dates: start: 20190424

REACTIONS (2)
  - Asthenia [Recovered/Resolved]
  - Hypoglycaemia [Recovered/Resolved]

NARRATIVE: CASE EVENT DATE: 20200206
